FAERS Safety Report 18383399 (Version 4)
Quarter: 2022Q3

REPORT INFORMATION
  Report Type: Spontaneous
  Country: US (occurrence: US)
  Receive Date: 20201014
  Receipt Date: 20220717
  Transmission Date: 20221027
  Serious: Yes (Hospitalization, Other)
  Sender: FDA-Public Use
  Company Number: US-GILEAD-2020-0498939

PATIENT
  Age: 60 Year
  Sex: Male
  Weight: 83.447 kg

DRUGS (25)
  1. TRUVADA [Suspect]
     Active Substance: EMTRICITABINE\TENOFOVIR DISOPROXIL FUMARATE
     Indication: HIV infection
     Dosage: UNK
     Route: 048
     Dates: start: 201001, end: 201906
  2. TRUVADA [Suspect]
     Active Substance: EMTRICITABINE\TENOFOVIR DISOPROXIL FUMARATE
     Dosage: UNK
     Route: 048
     Dates: start: 2006, end: 20190601
  3. TRUVADA [Suspect]
     Active Substance: EMTRICITABINE\TENOFOVIR DISOPROXIL FUMARATE
     Dosage: UNK
     Route: 065
     Dates: start: 200601, end: 201906
  4. INSULIN NOS [Concomitant]
     Active Substance: INSULIN NOS
     Indication: Diabetes mellitus
     Dosage: UNK
  5. ACETAMINOPHEN [Concomitant]
     Active Substance: ACETAMINOPHEN
  6. AMITRIPTYLINE [Concomitant]
     Active Substance: AMITRIPTYLINE
  7. AMOXICILLIN [Concomitant]
     Active Substance: AMOXICILLIN
  8. AMPICILLIN [Concomitant]
     Active Substance: AMPICILLIN
  9. ASPIRIN [Concomitant]
     Active Substance: ASPIRIN
  10. BACTRIM [Concomitant]
     Active Substance: SULFAMETHOXAZOLE\TRIMETHOPRIM
  11. OMEPRAZOLE [Concomitant]
     Active Substance: OMEPRAZOLE
  12. EPIVIR [Concomitant]
     Active Substance: LAMIVUDINE
     Dosage: UNK
  13. TRIUMEQ [Concomitant]
     Active Substance: ABACAVIR SULFATE\DOLUTEGRAVIR SODIUM\LAMIVUDINE
  14. ZIAGEN [Concomitant]
     Active Substance: ABACAVIR SULFATE
  15. NEVIRAPINE [Concomitant]
     Active Substance: NEVIRAPINE
  16. TOBRAMYCIN [Concomitant]
     Active Substance: TOBRAMYCIN
  17. COZAAR [Concomitant]
     Active Substance: LOSARTAN POTASSIUM
  18. VALIUM [Concomitant]
     Active Substance: DIAZEPAM
  19. AMLODIPINE [Concomitant]
     Active Substance: AMLODIPINE BESYLATE
  20. LOSARTAN [Concomitant]
     Active Substance: LOSARTAN
  21. NOVOLIN 10R [Concomitant]
  22. LANTUS [Concomitant]
     Active Substance: INSULIN GLARGINE
  23. METFORMIN [Concomitant]
     Active Substance: METFORMIN HYDROCHLORIDE
  24. IBUPROFEN [Concomitant]
     Active Substance: IBUPROFEN
  25. DICLOFENAC [Concomitant]
     Active Substance: DICLOFENAC

REACTIONS (5)
  - Chronic kidney disease [Not Recovered/Not Resolved]
  - Nephropathy toxic [Not Recovered/Not Resolved]
  - Renal failure [Unknown]
  - Emotional distress [Unknown]
  - Pain [Unknown]

NARRATIVE: CASE EVENT DATE: 20120531
